FAERS Safety Report 8386744-8 (Version None)
Quarter: 2012Q2

REPORT INFORMATION
  Report Type: 
  Country: None (occurrence: None)
  Receive Date: 20120525
  Receipt Date: 20120514
  Transmission Date: 20120825
  Serious: Yes (Other)
  Sender: FDA-Public Use
  Company Number: US-VALEANT-2012VX002262

PATIENT

DRUGS (4)
  1. FLUOROURACIL [Suspect]
     Route: 042
  2. NEXAVAR [Suspect]
     Route: 048
  3. LEUCOVORIN CALCIUM [Suspect]
     Route: 042
  4. FLUOROURACIL [Suspect]
     Route: 042

REACTIONS (1)
  - DEVICE RELATED INFECTION [None]
